FAERS Safety Report 6280941-3 (Version None)
Quarter: 2009Q3

REPORT INFORMATION
  Report Type: 
  Country: None (occurrence: None)
  Receive Date: 20090724
  Receipt Date: 20090715
  Transmission Date: 20100115
  Serious: Yes (Hospitalization, Other)
  Sender: FDA-Public Use
  Company Number: US-CELGENEUS-163-21880-09050542

PATIENT
  Sex: Male

DRUGS (2)
  1. REVLIMID [Suspect]
     Route: 048
     Dates: start: 20090201
  2. REVLIMID [Suspect]
     Route: 048
     Dates: start: 20090601

REACTIONS (4)
  - ARTHRITIS INFECTIVE [None]
  - FALL [None]
  - JOINT INJURY [None]
  - WHITE BLOOD CELL COUNT DECREASED [None]
